FAERS Safety Report 19903357 (Version 1)
Quarter: 2021Q4

REPORT INFORMATION
  Report Type: Report from Study
  Country: None (occurrence: US)
  Receive Date: 20211001
  Receipt Date: 20211001
  Transmission Date: 20220303
  Serious: Yes (Other)
  Sender: FDA-Public Use
  Company Number: US-ABBVIE-21K-163-4099828-00

PATIENT
  Sex: Male

DRUGS (1)
  1. IMBRUVICA [Suspect]
     Active Substance: IBRUTINIB
     Indication: Non-Hodgkin^s lymphoma
     Route: 048
     Dates: start: 201804

REACTIONS (5)
  - Nephrolithiasis [Unknown]
  - Pharyngeal swelling [Unknown]
  - Joint swelling [Unknown]
  - Oropharyngeal pain [Unknown]
  - Neuropathy peripheral [Unknown]
